FAERS Safety Report 9319157 (Version 1)
Quarter: 2013Q2

REPORT INFORMATION
  Report Type: Spontaneous
  Country: US (occurrence: None)
  Receive Date: 20130523
  Receipt Date: 20130523
  Transmission Date: 20140414
  Serious: Yes (Other)
  Sender: FDA-Public Use
  Company Number: ACO_36213_2013

PATIENT
  Age: 57 Year
  Sex: Male

DRUGS (3)
  1. AMPYRA [Suspect]
     Indication: GAIT DISTURBANCE
     Dates: end: 20120724
  2. AMPYRA [Suspect]
     Indication: MULTIPLE SCLEROSIS
     Dates: end: 20120724
  3. FINASTERIDE (FINASTERIDE) [Concomitant]

REACTIONS (2)
  - Convulsion [None]
  - Tongue biting [None]
